FAERS Safety Report 14838584 (Version 1)
Quarter: 2018Q2

REPORT INFORMATION
  Report Type: Spontaneous
  Country: US (occurrence: US)
  Receive Date: 20180502
  Receipt Date: 20180502
  Transmission Date: 20180711
  Serious: No
  Sender: FDA-Public Use
  Company Number: US-BEH-2018090289

PATIENT
  Sex: Male
  Weight: 79.82 kg

DRUGS (30)
  1. AZITHROMYCIN ANHYDROUS. [Concomitant]
     Active Substance: AZITHROMYCIN ANHYDROUS
  2. METOPROLOL SUCCINATE. [Concomitant]
     Active Substance: METOPROLOL SUCCINATE
  3. PENTASA [Concomitant]
     Active Substance: MESALAMINE
  4. ZEMAIRA [Suspect]
     Active Substance: .ALPHA.1-PROTEINASE INHIBITOR HUMAN
     Dosage: 60 MG/KG, TOT
     Route: 042
  5. ALEVE [Concomitant]
     Active Substance: NAPROXEN SODIUM
  6. SINGULAIR [Concomitant]
     Active Substance: MONTELUKAST SODIUM
  7. LEVOTHYROXINE. [Concomitant]
     Active Substance: LEVOTHYROXINE
  8. GABAPENTIN. [Concomitant]
     Active Substance: GABAPENTIN
  9. ATORVASTATIN [Concomitant]
     Active Substance: ATORVASTATIN
  10. LORAZEPAM. [Concomitant]
     Active Substance: LORAZEPAM
  11. AZELASTINE. [Concomitant]
     Active Substance: AZELASTINE HYDROCHLORIDE
  12. ASPIRIN. [Concomitant]
     Active Substance: ASPIRIN
  13. DIPHENHYDRAMINE. [Concomitant]
     Active Substance: DIPHENHYDRAMINE
  14. IPRATROPIUM/ALBUTEROL [Concomitant]
     Active Substance: ALBUTEROL\IPRATROPIUM
  15. SPRYCEL [Concomitant]
     Active Substance: DASATINIB
  16. ZEMAIRA [Suspect]
     Active Substance: .ALPHA.1-PROTEINASE INHIBITOR HUMAN
     Indication: ALPHA-1 ANTI-TRYPSIN DEFICIENCY
     Dosage: 60 MG/KG, QW
     Route: 042
     Dates: start: 20141003
  17. FOLITAB                            /00024201/ [Concomitant]
  18. OXYGEN. [Concomitant]
     Active Substance: OXYGEN
  19. SODIUM CHLORIDE. [Concomitant]
     Active Substance: SODIUM CHLORIDE
  20. LOSARTAN. [Concomitant]
     Active Substance: LOSARTAN
  21. ADVAIR HFA [Concomitant]
     Active Substance: FLUTICASONE PROPIONATE\SALMETEROL XINAFOATE
  22. VITAMIN B12 [Concomitant]
     Active Substance: CYANOCOBALAMIN
  23. METOCLOPRAMIDE. [Concomitant]
     Active Substance: METOCLOPRAMIDE
  24. THEOPHYLLINE [Concomitant]
     Active Substance: THEOPHYLLINE ANHYDROUS
  25. LMX                                /00033401/ [Concomitant]
     Route: 065
  26. EPINEPHRINE. [Concomitant]
     Active Substance: EPINEPHRINE
  27. MOMETASONE [Concomitant]
     Active Substance: MOMETASONE
  28. VENTOLIN [Concomitant]
     Active Substance: ALBUTEROL SULFATE
  29. DALIRESP [Concomitant]
     Active Substance: ROFLUMILAST
  30. OMEPRAZOLE. [Concomitant]
     Active Substance: OMEPRAZOLE

REACTIONS (2)
  - Muscle strain [Recovering/Resolving]
  - Back pain [Recovering/Resolving]
